FAERS Safety Report 15610523 (Version 1)
Quarter: 2018Q4

REPORT INFORMATION
  Report Type: Spontaneous
  Country: US (occurrence: US)
  Receive Date: 20181113
  Receipt Date: 20181113
  Transmission Date: 20190205
  Serious: No
  Sender: FDA-Public Use
  Company Number: US-ROCHE-2066201

PATIENT

DRUGS (1)
  1. PULMOZYME [Suspect]
     Active Substance: DORNASE ALFA
     Indication: PLEURAL EFFUSION
     Route: 034

REACTIONS (2)
  - No adverse event [Unknown]
  - Product administration error [Unknown]
